FAERS Safety Report 10238295 (Version 2)
Quarter: 2015Q3

REPORT INFORMATION
  Report Type: Spontaneous
  Country: US (occurrence: US)
  Receive Date: 20140616
  Receipt Date: 20150805
  Transmission Date: 20151125
  Serious: No
  Sender: FDA-Public Use
  Company Number: US-PFIZER INC-2014161216

PATIENT
  Age: 44 Year
  Sex: Female
  Weight: 63.49 kg

DRUGS (5)
  1. AVINZA [Suspect]
     Active Substance: MORPHINE SULFATE
     Indication: MIGRAINE
     Dosage: 90 MG, DAILY
     Dates: start: 2007, end: 201402
  2. IBUPROFEN. [Concomitant]
     Active Substance: IBUPROFEN
     Dosage: UNK
  3. BUTALBITAL, ACETAMINOPHEN, AND CAFFEINE [Concomitant]
     Active Substance: ACETAMINOPHEN\BUTALBITAL\CAFFEINE
     Dosage: UNK
  4. LORTAB [Concomitant]
     Active Substance: ACETAMINOPHEN\HYDROCODONE BITARTRATE
     Dosage: UNK, AS NEEDED
  5. VALIUM [Concomitant]
     Active Substance: DIAZEPAM
     Dosage: UNK, AS NEEDED

REACTIONS (3)
  - Pain in extremity [Unknown]
  - Nodule [Unknown]
  - Drug ineffective [Unknown]

NARRATIVE: CASE EVENT DATE: 201402
